FAERS Safety Report 15153507 (Version 6)
Quarter: 2022Q4

REPORT INFORMATION
  Report Type: Spontaneous
  Country: US (occurrence: None)
  Receive Date: 20180717
  Receipt Date: 20221223
  Transmission Date: 20230112
  Serious: Yes (Death, Hospitalization, Disabling, Other)
  Sender: FDA-Public Use
  Company Number: 2018SE90954

PATIENT
  Age: 17018 Day
  Sex: Male
  Weight: 113.4 kg

DRUGS (70)
  1. NEXIUM [Suspect]
     Active Substance: ESOMEPRAZOLE MAGNESIUM
     Indication: Gastrooesophageal reflux disease
     Route: 048
     Dates: start: 20090310, end: 20150601
  2. NEXIUM [Suspect]
     Active Substance: ESOMEPRAZOLE MAGNESIUM
     Indication: Gastrooesophageal reflux disease
     Route: 048
  3. NEXIUM [Suspect]
     Active Substance: ESOMEPRAZOLE MAGNESIUM
     Indication: Gastrooesophageal reflux disease
     Route: 048
     Dates: start: 20110225
  4. OMEPRAZOLE [Suspect]
     Active Substance: OMEPRAZOLE
     Indication: Gastrooesophageal reflux disease
     Dosage: GENERIC
     Route: 065
  5. PREVACID [Suspect]
     Active Substance: LANSOPRAZOLE
     Indication: Gastrooesophageal reflux disease
     Route: 065
  6. PREVACID [Suspect]
     Active Substance: LANSOPRAZOLE
     Indication: Gastrooesophageal reflux disease
     Dosage: GENERIC
     Route: 065
  7. PROTONIX [Suspect]
     Active Substance: PANTOPRAZOLE SODIUM
     Indication: Gastrooesophageal reflux disease
     Dosage: 40.0MG UNKNOWN
     Route: 065
  8. PROTONIX [Suspect]
     Active Substance: PANTOPRAZOLE SODIUM
     Indication: Gastrooesophageal reflux disease
     Dosage: GENERIC40.0MG UNKNOWN
     Route: 065
     Dates: start: 20080826, end: 20160608
  9. PROTONIX [Suspect]
     Active Substance: PANTOPRAZOLE SODIUM
     Indication: Gastrooesophageal reflux disease
     Dosage: 40.0MG UNKNOWN
     Route: 048
  10. PROTONIX [Suspect]
     Active Substance: PANTOPRAZOLE SODIUM
     Indication: Gastrooesophageal reflux disease
     Dosage: UNKNOWN
     Route: 065
  11. LISINOPRIL [Concomitant]
     Active Substance: LISINOPRIL
     Indication: Blood pressure measurement
  12. ATORVASTATIN [Concomitant]
     Active Substance: ATORVASTATIN
     Indication: Blood cholesterol
  13. TORSEMIDE [Concomitant]
     Active Substance: TORSEMIDE
     Indication: Renal disorder
  14. CLONIDINE [Concomitant]
     Active Substance: CLONIDINE
     Indication: Blood pressure measurement
  15. NIFEDICAL XL [Concomitant]
     Active Substance: NIFEDIPINE
  16. LABETALOL [Concomitant]
     Active Substance: LABETALOL\LABETALOL HYDROCHLORIDE
     Indication: Blood pressure measurement
  17. SIMVASTATIN [Concomitant]
     Active Substance: SIMVASTATIN
     Indication: Blood cholesterol
  18. ASPIRIN [Concomitant]
     Active Substance: ASPIRIN
     Dosage: AS NEEDED
  19. FAMOTIDINE [Concomitant]
     Active Substance: FAMOTIDINE
  20. MAGNESIUM HYDROXIDE [Concomitant]
     Active Substance: MAGNESIUM HYDROXIDE
  21. TUMS [Concomitant]
     Active Substance: CALCIUM CARBONATE
     Dosage: WHEN NEEDED
  22. ADVAIR DISKUS [Concomitant]
     Active Substance: FLUTICASONE PROPIONATE\SALMETEROL XINAFOATE
     Dosage: TWO TIMES A DAY
     Route: 055
  23. HYDRALAZINE [Concomitant]
     Active Substance: HYDRALAZINE HYDROCHLORIDE
     Dosage: TWO TIMES A DAY
     Route: 055
  24. METOLAZONE [Concomitant]
     Active Substance: METOLAZONE
     Route: 065
  25. GABAPENTIN [Concomitant]
     Active Substance: GABAPENTIN
     Route: 065
  26. FUROSEMIDE [Concomitant]
     Active Substance: FUROSEMIDE
     Route: 065
  27. AMLODIPINE [Concomitant]
     Active Substance: AMLODIPINE BESYLATE
     Route: 065
  28. SODIUM BICARBONATE [Concomitant]
     Active Substance: SODIUM BICARBONATE
     Route: 065
  29. NOVOLIN NOS [Concomitant]
     Active Substance: INSULIN HUMAN
     Route: 065
  30. LANTUS [Concomitant]
     Active Substance: INSULIN GLARGINE
     Route: 065
  31. PROAIR HFA [Concomitant]
     Active Substance: ALBUTEROL SULFATE
     Route: 065
  32. PROCRIT [Concomitant]
     Active Substance: ERYTHROPOIETIN
     Route: 065
  33. METOPROLOL TARTRATE [Concomitant]
     Active Substance: METOPROLOL TARTRATE
     Route: 065
  34. MIRTAZAPINE [Concomitant]
     Active Substance: MIRTAZAPINE
     Route: 065
  35. FLUOXETINE [Concomitant]
     Active Substance: FLUOXETINE HYDROCHLORIDE
     Route: 065
  36. NOVOLOG [Concomitant]
     Active Substance: INSULIN ASPART
     Route: 065
  37. ERGOCALCIFEROL [Concomitant]
     Active Substance: ERGOCALCIFEROL
  38. PREDNISOLONE [Concomitant]
     Active Substance: PREDNISOLONE
  39. SPIRONOLACTONE [Concomitant]
     Active Substance: SPIRONOLACTONE
  40. SUCRALFATE [Concomitant]
     Active Substance: SUCRALFATE
  41. BRIMONIDINE [Concomitant]
     Active Substance: BRIMONIDINE TARTRATE
  42. CYCLOBENZAPRINE [Concomitant]
     Active Substance: CYCLOBENZAPRINE
  43. GLYBURIDE [Concomitant]
     Active Substance: GLYBURIDE
  44. LEVEMIR [Concomitant]
     Active Substance: INSULIN DETEMIR
  45. BRINZOLAMIDE [Concomitant]
     Active Substance: BRINZOLAMIDE
  46. DORZOLAMIDE [Concomitant]
     Active Substance: DORZOLAMIDE
  47. TERBINAFINE [Concomitant]
     Active Substance: TERBINAFINE
  48. BUPROPION [Concomitant]
     Active Substance: BUPROPION
  49. DULCOLAX NOS [Concomitant]
     Active Substance: BISACODYL OR DOCUSATE SODIUM
  50. ROXICODONE [Concomitant]
     Active Substance: OXYCODONE HYDROCHLORIDE
  51. LAMBREL [Concomitant]
  52. IMDUR [Concomitant]
     Active Substance: ISOSORBIDE MONONITRATE
  53. DOXYCYCLINE HYCLATE [Concomitant]
     Active Substance: DOXYCYCLINE HYCLATE
  54. ACETAZOLAMIDE [Concomitant]
     Active Substance: ACETAZOLAMIDE
  55. ACETAMINOPHEN\HYDROCODONE BITARTRATE [Concomitant]
     Active Substance: ACETAMINOPHEN\HYDROCODONE BITARTRATE
  56. METOCLOPRAMIDE [Concomitant]
     Active Substance: METOCLOPRAMIDE
  57. AMITRIPTYLINE [Concomitant]
     Active Substance: AMITRIPTYLINE
  58. HYDROCHLOROTHIAZIDE [Concomitant]
     Active Substance: HYDROCHLOROTHIAZIDE
  59. GLIPIZIDE [Concomitant]
     Active Substance: GLIPIZIDE
  60. METFORMIN [Concomitant]
     Active Substance: METFORMIN HYDROCHLORIDE
  61. MECLIZINE HYDROCHLORIDE [Concomitant]
     Active Substance: MECLIZINE HYDROCHLORIDE
  62. SODIUM CHLORIDE [Concomitant]
     Active Substance: SODIUM CHLORIDE
  63. BACLOFEN [Concomitant]
     Active Substance: BACLOFEN
  64. PHENERGAN [Concomitant]
     Active Substance: PROMETHAZINE HYDROCHLORIDE
  65. ABILIFY [Concomitant]
     Active Substance: ARIPIPRAZOLE
  66. HUMALOG [Concomitant]
     Active Substance: INSULIN LISPRO
  67. CARVEDILOL [Concomitant]
     Active Substance: CARVEDILOL
  68. DIPHENHYDRAMINE HYDROCHLORIDE [Concomitant]
     Active Substance: DIPHENHYDRAMINE HYDROCHLORIDE
  69. DULOXETINE [Concomitant]
     Active Substance: DULOXETINE
  70. TADALAFIL [Concomitant]
     Active Substance: TADALAFIL

REACTIONS (13)
  - End stage renal disease [Fatal]
  - Chronic left ventricular failure [Fatal]
  - Pleural effusion [Fatal]
  - Type 2 diabetes mellitus [Fatal]
  - Acute kidney injury [Unknown]
  - Chronic kidney disease [Unknown]
  - Renal failure [Not Recovered/Not Resolved]
  - Prerenal failure [Unknown]
  - Nephrogenic anaemia [Not Recovered/Not Resolved]
  - Pancreatitis [Not Recovered/Not Resolved]
  - Chronic kidney disease-mineral and bone disorder [Unknown]
  - Hyperparathyroidism secondary [Unknown]
  - Depression [Not Recovered/Not Resolved]

NARRATIVE: CASE EVENT DATE: 20100427
